FAERS Safety Report 20922112 (Version 3)
Quarter: 2022Q2

REPORT INFORMATION
  Report Type: Report from Study
  Country: AU (occurrence: AU)
  Receive Date: 20220607
  Receipt Date: 20220621
  Transmission Date: 20220721
  Serious: Yes (Hospitalization)
  Sender: FDA-Public Use
  Company Number: AU-ABBVIE-22K-008-4419480-00

PATIENT
  Age: 64 Year
  Sex: Male

DRUGS (7)
  1. CARBIDOPA\LEVODOPA [Suspect]
     Active Substance: CARBIDOPA\LEVODOPA
     Indication: Parkinson^s disease
     Dosage: DOSE INCREASED ?5 ML PER HOURS?100ML GEL CASSETTE, DURATION TEXT: 24 HOURS
     Route: 050
     Dates: start: 20171013
  2. CARBIDOPA\LEVODOPA [Suspect]
     Active Substance: CARBIDOPA\LEVODOPA
  3. DUTASTERIDE\TAMSULOSIN [Concomitant]
     Active Substance: DUTASTERIDE\TAMSULOSIN
     Indication: Product used for unknown indication
     Dosage: AT NIGHT
  4. DOCUSATE SODIUM\SENNOSIDES A AND B [Concomitant]
     Active Substance: DOCUSATE SODIUM\SENNOSIDES A AND B
     Indication: Product used for unknown indication
  5. KEFLEX [Concomitant]
     Active Substance: CEPHALEXIN
     Indication: Product used for unknown indication
  6. ROXITHROMYCIN [Concomitant]
     Active Substance: ROXITHROMYCIN
     Indication: Product used for unknown indication
  7. BETADINE [Concomitant]
     Active Substance: POVIDONE-IODINE
     Indication: Product used for unknown indication

REACTIONS (12)
  - Abdominal pain upper [Unknown]
  - Psychotic disorder [Recovered/Resolved]
  - Loss of personal independence in daily activities [Unknown]
  - Anosmia [Unknown]
  - Bradykinesia [Unknown]
  - Stoma site extravasation [Recovering/Resolving]
  - Tremor [Unknown]
  - Confusional state [Recovered/Resolved]
  - Gastrostomy [Unknown]
  - Incorrect route of product administration [Unknown]
  - Device loosening [Unknown]
  - Stoma site discharge [Recovering/Resolving]

NARRATIVE: CASE EVENT DATE: 20220601
